FAERS Safety Report 6794205-2 (Version None)
Quarter: 2010Q2

REPORT INFORMATION
  Report Type: 
  Country: None (occurrence: None)
  Receive Date: 20100625
  Receipt Date: 20100616
  Transmission Date: 20101027
  Serious: Yes (Hospitalization)
  Sender: FDA-Public Use
  Company Number: US-BIOGENIDEC-2010BI020195

PATIENT
  Age: 41 Year
  Sex: Female
  Weight: 55 kg

DRUGS (2)
  1. TYSABRI [Suspect]
     Indication: MULTIPLE SCLEROSIS
     Route: 042
     Dates: start: 20090707
  2. BACOLFEN [Concomitant]
     Indication: MUSCLE SPASTICITY
     Route: 048

REACTIONS (4)
  - ARTHROPOD BITE [None]
  - GANGRENE [None]
  - IMPAIRED HEALING [None]
  - TOE AMPUTATION [None]
